FAERS Safety Report 4294086-5 (Version None)
Quarter: 2004Q1

REPORT INFORMATION
  Report Type: 
  Country: None (occurrence: None)
  Receive Date: 20040212
  Receipt Date: 20040212
  Transmission Date: 20041129
  Serious: Yes (Other)
  Sender: FDA-Public Use
  Company Number: None

PATIENT
  Age: 35 Year
  Sex: Male
  Weight: 86.1834 kg

DRUGS (1)
  1. DR. SCHOLLS WART REMOVER [Suspect]

REACTIONS (3)
  - BURNS FIRST DEGREE [None]
  - SCAR [None]
  - SKIN DEGENERATIVE DISORDER [None]
